FAERS Safety Report 4832747-7 (Version None)
Quarter: 2005Q4

REPORT INFORMATION
  Report Type: 
  Country: None (occurrence: None)
  Receive Date: 20051117
  Receipt Date: 20051108
  Transmission Date: 20060501
  Serious: Yes (Death, Hospitalization, Other)
  Sender: FDA-Public Use
  Company Number: CA_051108975

PATIENT
  Age: 59 Year
  Sex: Male
  Weight: 76 kg

DRUGS (12)
  1. ALIMTA [Suspect]
     Indication: MESOTHELIOMA
     Dosage: 950 MG/EVERY 3 WEEKS OTHER
     Route: 050
     Dates: start: 20050804
  2. CISPLATIN [Concomitant]
  3. DIGOXIN [Concomitant]
  4. COLACE (DOCUSATE SODIUM) [Concomitant]
  5. DILAUDID [Concomitant]
  6. LORAZEPAM [Concomitant]
  7. SENOKOT /00142201/ (SENNA ALEXANDRINA) [Concomitant]
  8. TYLENOL [Concomitant]
  9. METOCLOPRAMIDE [Concomitant]
  10. SCOPOLAMINE [Concomitant]
  11. VITAMIN B-12 [Concomitant]
  12. FOLIC ACID [Concomitant]

REACTIONS (20)
  - ABDOMINAL PAIN [None]
  - ASCITES [None]
  - BLOOD CREATININE INCREASED [None]
  - BLOOD POTASSIUM INCREASED [None]
  - BLOOD UREA INCREASED [None]
  - DYSPNOEA [None]
  - DYSPNOEA EXACERBATED [None]
  - EFFUSION [None]
  - HAEMOGLOBIN INCREASED [None]
  - ILEUS [None]
  - INTESTINAL PERFORATION [None]
  - MALIGNANT NEOPLASM PROGRESSION [None]
  - MASS [None]
  - MEDIASTINAL DISORDER [None]
  - MESOTHELIOMA [None]
  - PERITONEAL DISORDER [None]
  - PLATELET COUNT INCREASED [None]
  - PLEURAL FIBROSIS [None]
  - SUDDEN DEATH [None]
  - WHITE BLOOD CELL COUNT INCREASED [None]
